FAERS Safety Report 5842024-3 (Version None)
Quarter: 2008Q3

REPORT INFORMATION
  Report Type: 
  Country: None (occurrence: None)
  Receive Date: 20080811
  Receipt Date: 20080811
  Transmission Date: 20090109
  Serious: Yes (Other)
  Sender: FDA-Public Use
  Company Number: None

PATIENT
  Age: 47 Year
  Sex: Female
  Weight: 63.5036 kg

DRUGS (1)
  1. ERYTHROCIN [Suspect]
     Indication: INFECTION
     Dosage: AVERAGE 3 TIMES A DAY PO
     Route: 048
     Dates: start: 20060513, end: 20060520

REACTIONS (3)
  - FEELING ABNORMAL [None]
  - GAIT DISTURBANCE [None]
  - SUNBURN [None]
